FAERS Safety Report 26087428 (Version 1)
Quarter: 2025Q4

REPORT INFORMATION
  Report Type: Spontaneous
  Country: KR (occurrence: KR)
  Receive Date: 20251125
  Receipt Date: 20251125
  Transmission Date: 20260118
  Serious: Yes (Other)
  Sender: BOEHRINGER INGELHEIM
  Company Number: KR-BoehringerIngelheim-2025-BI-109860

PATIENT
  Age: 77 Year
  Sex: Female

DRUGS (10)
  1. MICARDIS [Suspect]
     Active Substance: TELMISARTAN
     Indication: Hypertension
     Dates: start: 20250324, end: 20250408
  2. AMLODIPINE BESYLATE [Suspect]
     Active Substance: AMLODIPINE BESYLATE
     Indication: Hypertension
     Dates: start: 20250324, end: 20250408
  3. ATORVASTATIN CALCIUM [Suspect]
     Active Substance: ATORVASTATIN CALCIUM
     Indication: Hypertension
     Dates: start: 20250324, end: 20250408
  4. ASPIRIN [Suspect]
     Active Substance: ASPIRIN
     Indication: Hypertension
     Dates: start: 20250324, end: 20250408
  5. CARVEDILOL [Suspect]
     Active Substance: CARVEDILOL
     Indication: Hypertension
     Dates: start: 20250324, end: 20250408
  6. METFORMIN HYDROCHLORIDE\SITAGLIPTIN [Suspect]
     Active Substance: METFORMIN HYDROCHLORIDE\SITAGLIPTIN
     Indication: Hypertension
     Dates: start: 20250324, end: 20250408
  7. ACETAMINOPHEN [Suspect]
     Active Substance: ACETAMINOPHEN
     Indication: Hypertension
     Dates: start: 20250324, end: 20250327
  8. REBAMIPIDE [Suspect]
     Active Substance: REBAMIPIDE
     Indication: Hypertension
     Dates: start: 20250324, end: 20250327
  9. CHLORPHENIRAMINE MALEATE\DEXTROMETHORPHAN HBR/GUAIFENESIN/METHYLEPHEDR [Suspect]
     Active Substance: CHLORPHENIRAMINE MALEATE\DEXTROMETHORPHAN HBR/GUAIFENESIN/METHYLEPHEDRINE HCL
     Indication: Hypertension
     Dates: start: 20250324, end: 20250327
  10. ACETYLCYSTEINE [Suspect]
     Active Substance: ACETYLCYSTEINE
     Indication: Hypertension
     Dates: start: 20250324, end: 20250327

REACTIONS (1)
  - Heart disease congenital [Recovered/Resolved]

NARRATIVE: CASE EVENT DATE: 20250324
